FAERS Safety Report 6759948-5 (Version None)
Quarter: 2010Q2

REPORT INFORMATION
  Report Type: 
  Country: None (occurrence: None)
  Receive Date: 20100604
  Receipt Date: 20100521
  Transmission Date: 20101027
  Serious: Yes (Hospitalization)
  Sender: FDA-Public Use
  Company Number: 7002400

PATIENT
  Age: 38 Year
  Sex: Female

DRUGS (3)
  1. REBIF [Suspect]
     Indication: DRUG USE FOR UNKNOWN INDICATION
     Dosage: 8.8 MCG, SUBCUTANEOUS; 22 MCG, SUBCUTANEOUS; 44 MCG, SUBCUTANEOUS
     Route: 058
     Dates: start: 20100101, end: 20100101
  2. REBIF [Suspect]
     Indication: DRUG USE FOR UNKNOWN INDICATION
     Dosage: 8.8 MCG, SUBCUTANEOUS; 22 MCG, SUBCUTANEOUS; 44 MCG, SUBCUTANEOUS
     Route: 058
     Dates: start: 20100101, end: 20100101
  3. REBIF [Suspect]
     Indication: DRUG USE FOR UNKNOWN INDICATION
     Dosage: 8.8 MCG, SUBCUTANEOUS; 22 MCG, SUBCUTANEOUS; 44 MCG, SUBCUTANEOUS
     Route: 058
     Dates: start: 20100421, end: 20100101

REACTIONS (1)
  - CONVULSION [None]
